FAERS Safety Report 13908709 (Version 1)
Quarter: 2017Q3

REPORT INFORMATION
  Report Type: Spontaneous
  Country: US (occurrence: US)
  Receive Date: 20170827
  Receipt Date: 20170827
  Transmission Date: 20171127
  Serious: Yes (Other)
  Sender: FDA-Public Use
  Company Number: US-BEH-2017083051

PATIENT
  Sex: Female

DRUGS (2)
  1. ESTROGEN [Concomitant]
     Active Substance: ESTROGENS
  2. HIZENTRA [Suspect]
     Active Substance: HUMAN IMMUNOGLOBULIN G
     Indication: PRODUCT USED FOR UNKNOWN INDICATION
     Dosage: 8 G, QW
     Route: 065
     Dates: start: 201702

REACTIONS (11)
  - Nausea [Unknown]
  - Injection site swelling [Unknown]
  - Chromaturia [Unknown]
  - Injection site pain [Unknown]
  - Urine output decreased [Unknown]
  - Headache [Unknown]
  - Photophobia [Unknown]
  - Nephrolithiasis [Unknown]
  - Injection site erythema [Unknown]
  - Diarrhoea [Unknown]
  - Fatigue [Unknown]
